FAERS Safety Report 7079965 (Version 3)
Quarter: 2014Q1

REPORT INFORMATION
  Report Type: Spontaneous
  Country: US (occurrence: None)
  Receive Date: 20090805
  Receipt Date: 20140225
  Transmission Date: 20141002
  Serious: Yes (Other)
  Sender: FDA-Public Use
  Company Number: 2009S1005847

PATIENT
  Age: 56 Year
  Sex: Female
  Weight: 101.42 kg

DRUGS (5)
  1. FLEET PHOSPHO-SODA [Suspect]
     Dosage: 90 ML,  2 IN 24 HOURS, ORAL
     Route: 048
     Dates: start: 200310, end: 200310
  2. PREVACID (LANSOPRAZOLE) [Concomitant]
  3. REGLAN (METOCLOPRAMIDE) [Concomitant]
  4. ACIPHEX (RABEPRAZOLE SODIUM) [Concomitant]
  5. TOPROL (METOPROLOL SUCCINATE) [Concomitant]

REACTIONS (5)
  - Renal failure chronic [None]
  - Flank pain [None]
  - Renal artery stenosis [None]
  - Kidney fibrosis [None]
  - Hyperparathyroidism secondary [None]
